FAERS Safety Report 5817428-5 (Version None)
Quarter: 2008Q3

REPORT INFORMATION
  Report Type: 
  Country: None (occurrence: None)
  Receive Date: 20080722
  Receipt Date: 20080714
  Transmission Date: 20090109
  Serious: Yes (Other)
  Sender: FDA-Public Use
  Company Number: DE-ELI_LILLY_AND_COMPANY-DE200805001097

PATIENT
  Sex: Male

DRUGS (17)
  1. ZYPREXA [Suspect]
     Dosage: 5 MG, DAILY (1/D)
     Route: 048
     Dates: start: 20080411
  2. ZYPREXA [Suspect]
     Dosage: 10 MG, DAILY (1/D)
     Route: 048
     Dates: start: 20080412
  3. ZYPREXA [Suspect]
     Dosage: 15 MG, DAILY (1/D)
     Route: 048
     Dates: start: 20080413
  4. ZYPREXA [Suspect]
     Dosage: 20 MG, DAILY (1/D)
     Route: 048
     Dates: start: 20080421
  5. ZYPREXA [Suspect]
     Dosage: 25 MG, DAILY (1/D)
     Route: 048
     Dates: start: 20080422, end: 20080422
  6. ZYPREXA [Suspect]
     Dosage: 15 MG, DAILY (1/D)
     Dates: start: 20080422, end: 20080601
  7. ZYPREXA [Suspect]
     Dosage: 10 MG, DAILY (1/D)
     Dates: start: 20080602, end: 20080615
  8. ZYPREXA [Suspect]
     Dosage: 7.5 MG, DAILY (1/D)
     Dates: start: 20080616, end: 20080618
  9. ZYPREXA [Suspect]
     Dosage: 5 MG, DAILY (1/D)
     Dates: start: 20080619
  10. ZYPREXA [Suspect]
     Dosage: 2.5 MG, DAILY (1/D)
     Dates: start: 20080630, end: 20080630
  11. LORAZEPAM [Concomitant]
     Dosage: 0.5 MG, DAILY (1/D)
     Dates: start: 20080411
  12. LORAZEPAM [Concomitant]
     Dosage: 1 MG, 4/D
     Dates: start: 20080413
  13. LORAZEPAM [Concomitant]
     Dosage: 3 MG, DAILY (1/D)
     Dates: start: 20080421
  14. LORAZEPAM [Concomitant]
     Dosage: 2.5 MG, DAILY (1/D)
     Dates: start: 20080425
  15. LORAZEPAM [Concomitant]
     Dosage: 2 MG, DAILY (1/D)
     Dates: start: 20080426
  16. LORAZEPAM [Concomitant]
     Dosage: 1.5 MG, DAILY (1/D)
     Dates: start: 20080428
  17. LORAZEPAM [Concomitant]
     Dosage: 2 MG, DAILY (1/D)
     Dates: start: 20080429

REACTIONS (15)
  - ALANINE AMINOTRANSFERASE INCREASED [None]
  - ASPARTATE AMINOTRANSFERASE INCREASED [None]
  - BLOOD ALKALINE PHOSPHATASE INCREASED [None]
  - BLOOD PHOSPHORUS INCREASED [None]
  - BLOOD PROLACTIN INCREASED [None]
  - FATIGUE [None]
  - GRANULOCYTOPENIA [None]
  - HAEMOGLOBIN DECREASED [None]
  - LYMPHOCYTOSIS [None]
  - NAUSEA [None]
  - NEUTROPHIL COUNT DECREASED [None]
  - OVERDOSE [None]
  - PSYCHIATRIC SYMPTOM [None]
  - RESTLESSNESS [None]
  - WHITE BLOOD CELL COUNT INCREASED [None]
